FAERS Safety Report 9709137 (Version 1)
Quarter: 2013Q4

REPORT INFORMATION
  Report Type: Report from Study
  Country: US (occurrence: US)
  Receive Date: 20131125
  Receipt Date: 20131125
  Transmission Date: 20140711
  Serious: Yes (Death)
  Sender: FDA-Public Use
  Company Number: US-US-EMD SERONO, INC.-7252158

PATIENT
  Sex: Male

DRUGS (3)
  1. REBIF [Suspect]
     Indication: PRODUCT USED FOR UNKNOWN INDICATION
     Route: 058
     Dates: start: 200805, end: 200807
  2. REBIF [Suspect]
     Route: 058
     Dates: start: 201303, end: 201305
  3. REBIF [Suspect]
     Route: 058
     Dates: start: 20130906

REACTIONS (1)
  - Death [Fatal]
